FAERS Safety Report 13594064 (Version 1)
Quarter: 2017Q2

REPORT INFORMATION
  Report Type: Spontaneous
  Country: US (occurrence: US)
  Receive Date: 20170530
  Receipt Date: 20170530
  Transmission Date: 20170830
  Serious: No
  Sender: FDA-Public Use
  Company Number: PHEH2017US015900

PATIENT
  Sex: Female

DRUGS (1)
  1. AFINITOR [Suspect]
     Active Substance: EVEROLIMUS
     Indication: BREAST CANCER
     Dosage: 10 MG, QD
     Route: 065
     Dates: start: 20170405

REACTIONS (4)
  - Constipation [Recovered/Resolved]
  - Frequent bowel movements [Not Recovered/Not Resolved]
  - Oral pain [Recovering/Resolving]
  - Hypertension [Recovering/Resolving]
